FAERS Safety Report 6861490-8 (Version None)
Quarter: 2010Q3

REPORT INFORMATION
  Report Type: 
  Country: None (occurrence: None)
  Receive Date: 20100720
  Receipt Date: 20100720
  Transmission Date: 20110219
  Serious: Yes (Life-Threatening, Hospitalization)
  Sender: FDA-Public Use
  Company Number: None

PATIENT
  Age: 43 Year
  Sex: Female
  Weight: 101.7 kg

DRUGS (2)
  1. PROVERA [Suspect]
     Indication: DYSMENORRHOEA
  2. PROVERA [Suspect]
     Indication: MENORRHAGIA

REACTIONS (3)
  - EMBOLISM VENOUS [None]
  - PULMONARY EMBOLISM [None]
  - PULMONARY INFARCTION [None]
